FAERS Safety Report 9656092 (Version 1)
Quarter: 2013Q4

REPORT INFORMATION
  Report Type: Spontaneous
  Country: US (occurrence: US)
  Receive Date: 20131030
  Receipt Date: 20131030
  Transmission Date: 20140711
  Serious: No
  Sender: FDA-Public Use
  Company Number: PHEH2013US022225

PATIENT
  Sex: Female

DRUGS (14)
  1. TASIGNA [Suspect]
     Dosage: 150 MG, BID
  2. DEPRENYL [Concomitant]
  3. TRILIPIX [Concomitant]
  4. LOVENOX [Concomitant]
  5. LASIX [Concomitant]
  6. HUMALOG [Concomitant]
  7. LANTUS [Concomitant]
  8. LOSARTAN [Concomitant]
  9. METFORMIN [Concomitant]
  10. TOPROL [Concomitant]
  11. DITROPAN [Concomitant]
  12. PROTONIX [Concomitant]
  13. XARELTO [Concomitant]
  14. SIMVASTATIN [Concomitant]

REACTIONS (1)
  - Weight increased [Unknown]
